FAERS Safety Report 9729290 (Version 1)
Quarter: 2013Q4

REPORT INFORMATION
  Report Type: Spontaneous
  Country: US (occurrence: US)
  Receive Date: 20131204
  Receipt Date: 20131204
  Transmission Date: 20140711
  Serious: Yes (Hospitalization)
  Sender: FDA-Public Use
  Company Number: US-BAYER-2013-147445

PATIENT
  Age: 46 Year
  Sex: Female

DRUGS (12)
  1. YAZ [Suspect]
     Dosage: UNK
  2. YASMIN [Suspect]
  3. OCELLA [Suspect]
  4. LEVAQUIN [Concomitant]
     Indication: ASTHMA
     Route: 048
  5. ALBUTEROL NEBULIZER [Concomitant]
     Indication: ASTHMA
  6. PREDNISONE [Concomitant]
     Indication: ASTHMA
     Route: 048
  7. LISINOPRIL [Concomitant]
     Dosage: 10 MG, DAILY
     Route: 048
  8. ZOCOR [Concomitant]
     Dosage: 10 MG, DAILY
     Route: 048
  9. MEDROL [METHYLPREDNISOLONE ACETATE] [Concomitant]
     Indication: ASTHMA
     Route: 048
  10. XANAX [Concomitant]
  11. TUSSIONEX [Concomitant]
  12. LORTAB [Concomitant]

REACTIONS (1)
  - Pulmonary embolism [None]
